FAERS Safety Report 25961610 (Version 1)
Quarter: 2025Q4

REPORT INFORMATION
  Report Type: Spontaneous
  Country: CH (occurrence: CH)
  Receive Date: 20251027
  Receipt Date: 20251027
  Transmission Date: 20260118
  Serious: Yes (Other)
  Sender: ALKEM
  Company Number: CH-ALKEM LABORATORIES LIMITED-CH-ALKEM-2025-07026

PATIENT
  Age: 25 Year
  Sex: Male
  Weight: 53 kg

DRUGS (18)
  1. CLOBAZAM [Suspect]
     Active Substance: CLOBAZAM
     Indication: Intellectual disability
     Dosage: UNK
     Route: 065
  2. CLOBAZAM [Suspect]
     Active Substance: CLOBAZAM
     Indication: Trisomy 21
  3. CLOBAZAM [Suspect]
     Active Substance: CLOBAZAM
     Indication: Autism spectrum disorder
  4. OLANZAPINE [Suspect]
     Active Substance: OLANZAPINE
     Indication: Autism spectrum disorder
     Dosage: UNK
     Route: 065
  5. OLANZAPINE [Suspect]
     Active Substance: OLANZAPINE
     Indication: Intellectual disability
     Dosage: UNK (DOSE INCREASED)
     Route: 065
  6. OLANZAPINE [Suspect]
     Active Substance: OLANZAPINE
     Indication: Trisomy 21
     Dosage: UNK (DOSE DECREASED)
     Route: 065
  7. LEVOMEPROMAZINE [Suspect]
     Active Substance: LEVOMEPROMAZINE
     Indication: Autism spectrum disorder
     Dosage: UNK
     Route: 065
  8. LEVOMEPROMAZINE [Suspect]
     Active Substance: LEVOMEPROMAZINE
     Indication: Intellectual disability
  9. LEVOMEPROMAZINE [Suspect]
     Active Substance: LEVOMEPROMAZINE
     Indication: Trisomy 21
  10. LORAZEPAM [Suspect]
     Active Substance: LORAZEPAM
     Indication: Autism spectrum disorder
     Dosage: UNK
     Route: 065
  11. LORAZEPAM [Suspect]
     Active Substance: LORAZEPAM
     Indication: Intellectual disability
  12. LORAZEPAM [Suspect]
     Active Substance: LORAZEPAM
     Indication: Trisomy 21
  13. VALPROATE SODIUM [Suspect]
     Active Substance: VALPROATE SODIUM
     Indication: Autism spectrum disorder
     Dosage: UNK
     Route: 065
  14. VALPROATE SODIUM [Suspect]
     Active Substance: VALPROATE SODIUM
     Indication: Intellectual disability
  15. VALPROATE SODIUM [Suspect]
     Active Substance: VALPROATE SODIUM
     Indication: Trisomy 21
  16. RISPERIDONE [Concomitant]
     Active Substance: RISPERIDONE
     Indication: Autism spectrum disorder
     Dosage: UNK
     Route: 065
  17. RISPERIDONE [Concomitant]
     Active Substance: RISPERIDONE
     Indication: Intellectual disability
  18. RISPERIDONE [Concomitant]
     Active Substance: RISPERIDONE
     Indication: Trisomy 21

REACTIONS (1)
  - Urinary retention [Recovered/Resolved]
